FAERS Safety Report 19572603 (Version 1)
Quarter: 2021Q3

REPORT INFORMATION
  Report Type: Spontaneous
  Country: BR (occurrence: BR)
  Receive Date: 20210716
  Receipt Date: 20210716
  Transmission Date: 20211014
  Serious: Yes (Other)
  Sender: FDA-Public Use
  Company Number: BR-ASTRAZENECA-2021A316957

PATIENT
  Age: 85 Year
  Sex: Female
  Weight: 42 kg

DRUGS (1)
  1. IRESSA [Suspect]
     Active Substance: GEFITINIB
     Indication: LUNG NEOPLASM MALIGNANT
     Route: 048
     Dates: end: 20210705

REACTIONS (4)
  - Pruritus [Recovering/Resolving]
  - Weight decreased [Unknown]
  - Dehydration [Recovering/Resolving]
  - Occult blood positive [Unknown]
